FAERS Safety Report 8597415-7 (Version None)
Quarter: 2012Q3

REPORT INFORMATION
  Report Type: 
  Country: None (occurrence: None)
  Receive Date: 20120816
  Receipt Date: 20120808
  Transmission Date: 20120928
  Serious: Yes (Disabling)
  Sender: FDA-Public Use
  Company Number: US-BAYER-2011-000564

PATIENT
  Age: 24 Year
  Sex: Female
  Weight: 59 kg

DRUGS (2)
  1. XANAX [Concomitant]
     Route: 048
  2. YAZ [Suspect]
     Indication: CONTRACEPTION
     Dosage: UNK
     Route: 048
     Dates: start: 20070901, end: 20080331

REACTIONS (8)
  - HYPOAESTHESIA [None]
  - ANXIETY [None]
  - SPEECH DISORDER [None]
  - PAIN [None]
  - MEMORY IMPAIRMENT [None]
  - INJURY [None]
  - CEREBROVASCULAR ACCIDENT [None]
  - BRAIN INJURY [None]
